FAERS Safety Report 7389021-7 (Version None)
Quarter: 2011Q2

REPORT INFORMATION
  Report Type: 
  Country: None (occurrence: None)
  Receive Date: 20110401
  Receipt Date: 20110324
  Transmission Date: 20111010
  Serious: Yes (Death, Hospitalization)
  Sender: FDA-Public Use
  Company Number: US-PFIZER INC-2011051750

PATIENT
  Sex: Male

DRUGS (1)
  1. SUTENT [Suspect]
     Indication: BLADDER CANCER
     Dosage: 50 MG, 1X/DAY

REACTIONS (3)
  - BLADDER CANCER [None]
  - ANAEMIA [None]
  - DISEASE PROGRESSION [None]
